FAERS Safety Report 5509619-8 (Version None)
Quarter: 2007Q4

REPORT INFORMATION
  Report Type: 
  Country: None (occurrence: None)
  Receive Date: 20071107
  Receipt Date: 20071107
  Transmission Date: 20080405
  Serious: No
  Sender: FDA-Public Use
  Company Number: None

PATIENT
  Age: 19 Year
  Sex: Female
  Weight: 45.3597 kg

DRUGS (1)
  1. ENBREL [Suspect]
     Dosage: 50 MG Q WK SQ
     Route: 058
     Dates: start: 20070522

REACTIONS (1)
  - PRURITUS [None]
